FAERS Safety Report 5199595-2 (Version None)
Quarter: 2007Q1

REPORT INFORMATION
  Report Type: 
  Country: None (occurrence: None)
  Receive Date: 20070102
  Receipt Date: 20070102
  Transmission Date: 20070707
  Serious: Yes (Death, Hospitalization)
  Sender: FDA-Public Use
  Company Number: None

PATIENT
  Age: 35 Year
  Sex: Male
  Weight: 129.7287 kg

DRUGS (3)
  1. LIPITOR [Suspect]
     Indication: HYPERCHOLESTEROLAEMIA
  2. ACETADOTE [Suspect]
     Indication: HEPATIC FAILURE
     Dosage: 19.5 GRAMS X 1 IV BOLUS
     Dates: start: 20060820, end: 20060820
  3. ENZYTE [Suspect]
     Indication: ERECTILE DYSFUNCTION
     Dosage: 2 MONTHS

REACTIONS (9)
  - ABDOMINAL PAIN UPPER [None]
  - ALANINE AMINOTRANSFERASE INCREASED [None]
  - ANXIETY [None]
  - ASPARTATE AMINOTRANSFERASE INCREASED [None]
  - BURNING SENSATION [None]
  - CARDIO-RESPIRATORY ARREST [None]
  - HEART RATE DECREASED [None]
  - HYPERHIDROSIS [None]
  - LOSS OF CONSCIOUSNESS [None]
